FAERS Safety Report 7347873-0 (Version None)
Quarter: 2011Q1

REPORT INFORMATION
  Report Type: 
  Country: None (occurrence: None)
  Receive Date: 20110311
  Receipt Date: 20110302
  Transmission Date: 20110831
  Serious: Yes (Congenital Anomaly)
  Sender: FDA-Public Use
  Company Number: IL-JNJFOC-20110206357

PATIENT

DRUGS (2)
  1. GOLIMUMAB [Suspect]
     Indication: DRUG EXPOSURE DURING PREGNANCY
     Route: 015
  2. GOLIMUMAB [Suspect]
     Route: 015

REACTIONS (1)
  - ANENCEPHALY [None]
